FAERS Safety Report 6539974-1 (Version None)
Quarter: 2010Q1

REPORT INFORMATION
  Report Type: 
  Country: None (occurrence: None)
  Receive Date: 20100115
  Receipt Date: 20100107
  Transmission Date: 20100710
  Serious: Yes (Hospitalization, Other)
  Sender: FDA-Public Use
  Company Number: PHHO2010US00801

PATIENT
  Sex: Female
  Weight: 99.3 kg

DRUGS (9)
  1. ZOLEDRONATE T29581+SOLINF [Suspect]
     Indication: BREAST CANCER
     Dosage: 4 MG
     Route: 042
     Dates: start: 20091214
  2. CHEMOTHERAPEUTICS NOS [Suspect]
     Dosage: UNK
     Dates: start: 20091001, end: 20091201
  3. PROTONIX [Concomitant]
  4. AMBIEN [Concomitant]
  5. IMODIUM A-D [Concomitant]
  6. COMPAZINE [Concomitant]
  7. EMEND [Concomitant]
  8. CALCIUM [Concomitant]
  9. VITAMIN D [Concomitant]

REACTIONS (4)
  - ANAEMIA [None]
  - DIARRHOEA [None]
  - FEBRILE NEUTROPENIA [None]
  - NEUTROPENIA [None]
